FAERS Safety Report 9408325 (Version 8)
Quarter: 2014Q2

REPORT INFORMATION
  Report Type: Spontaneous
  Country: US (occurrence: US)
  Receive Date: 20130718
  Receipt Date: 20140605
  Transmission Date: 20141212
  Serious: Yes (Other)
  Sender: FDA-Public Use
  Company Number: US-009507513-1307USA006890

PATIENT
  Age: 40 Year
  Sex: Male
  Weight: 87.53 kg

DRUGS (5)
  1. PEGINTRON [Suspect]
     Indication: CHRONIC HEPATITIS C
     Dosage: 120 MCG/0.5 ML, REDIPEN, QW
     Route: 058
     Dates: start: 20130624, end: 20131210
  2. REBETOL [Suspect]
     Indication: CHRONIC HEPATITIS C
     Dosage: 400 MG, BID
     Route: 048
     Dates: start: 20130624, end: 20131210
  3. SYNTHROID [Concomitant]
     Indication: PRODUCT USED FOR UNKNOWN INDICATION
     Dosage: 250 MICROGRAM, QD
     Route: 048
  4. TYLENOL EXTRA STRENGTH [Concomitant]
     Indication: PRODUCT USED FOR UNKNOWN INDICATION
     Dosage: 500 MG, PRN
     Route: 048
  5. TUMS DUAL ACTION [Concomitant]
     Indication: PRODUCT USED FOR UNKNOWN INDICATION
     Dosage: 10-800-165 MG
     Route: 048

REACTIONS (24)
  - Pancytopenia [Not Recovered/Not Resolved]
  - Neutropenia [Not Recovered/Not Resolved]
  - Thrombocytopenia [Not Recovered/Not Resolved]
  - Hypersplenism [Unknown]
  - Splenomegaly [Unknown]
  - Hepatic function abnormal [Unknown]
  - Drug intolerance [Not Recovered/Not Resolved]
  - Bone marrow disorder [Unknown]
  - Rheumatoid arthritis [Unknown]
  - Non-Hodgkin^s lymphoma [Unknown]
  - Malnutrition [Unknown]
  - Fatigue [Unknown]
  - Insomnia [Unknown]
  - Clubbing [Unknown]
  - Portal hypertension [Unknown]
  - Hepatic cirrhosis [Unknown]
  - Thinking abnormal [Unknown]
  - Hyperhidrosis [Unknown]
  - Nasopharyngitis [Unknown]
  - Confusional state [Unknown]
  - Memory impairment [Not Recovered/Not Resolved]
  - Pyrexia [Unknown]
  - Chills [Unknown]
  - Inappropriate schedule of drug administration [Unknown]
